FAERS Safety Report 10082771 (Version 1)
Quarter: 2014Q2

REPORT INFORMATION
  Report Type: Spontaneous
  Country: US (occurrence: US)
  Receive Date: 20140416
  Receipt Date: 20140416
  Transmission Date: 20141212
  Serious: No
  Sender: FDA-Public Use
  Company Number: US-ALLERGAN-1309626US

PATIENT
  Sex: Female

DRUGS (2)
  1. ZYMAXID [Suspect]
     Indication: CATARACT OPERATION
     Dosage: 1 GTT, QID
     Route: 047
     Dates: start: 20130622, end: 20130627
  2. PREDNISOLONE ACETATE, 1.0% [Concomitant]
     Indication: CATARACT OPERATION
     Dosage: UNK
     Route: 047
     Dates: start: 20130622

REACTIONS (7)
  - Erythema of eyelid [Recovered/Resolved]
  - Drug hypersensitivity [Recovered/Resolved]
  - Eye pruritus [Recovered/Resolved]
  - Eyelids pruritus [Recovered/Resolved]
  - Eyelid margin crusting [Recovered/Resolved]
  - Eye discharge [Recovered/Resolved]
  - Off label use [Unknown]
